FAERS Safety Report 21189294 (Version 1)
Quarter: 2022Q3

REPORT INFORMATION
  Report Type: Other
  Country: US (occurrence: None)
  Receive Date: 20220809
  Receipt Date: 20220809
  Transmission Date: 20221027
  Serious: Yes (Other)
  Sender: FDA-Public Use
  Company Number: US-ROCHE-3155466

PATIENT
  Sex: Male

DRUGS (1)
  1. XELODA [Suspect]
     Active Substance: CAPECITABINE
     Indication: Gastric cancer
     Dosage: TAKE 3 TABLETS BY MOUTH TWICE A DAY CONTINUOUSLY, FORMULATION: TABLET
     Route: 048

REACTIONS (1)
  - Hepatic cancer [Unknown]
